FAERS Safety Report 19283703 (Version 4)
Quarter: 2021Q3

REPORT INFORMATION
  Report Type: Spontaneous
  Country: JP (occurrence: JP)
  Receive Date: 20210520
  Receipt Date: 20210728
  Transmission Date: 20211014
  Serious: Yes (Hospitalization)
  Sender: FDA-Public Use
  Company Number: JP-JNJFOC-20210537188

PATIENT
  Age: 27 Year
  Sex: Female

DRUGS (7)
  1. AZATHIOPRINE. [Suspect]
     Active Substance: AZATHIOPRINE
     Indication: COLITIS ULCERATIVE
     Dosage: 25 MILLIGRAM, QD?DRUG START PERIOD 280  (DAYS),  DRUG LAST PERIOD 1 (DAYS)
     Route: 048
     Dates: start: 20200727, end: 20210502
  2. AZANIN [Suspect]
     Active Substance: AZATHIOPRINE
     Dosage: UNK
     Route: 048
     Dates: start: 20200727, end: 20210502
  3. CLOSTRIDIUM BUTYRICUM [Concomitant]
     Active Substance: CLOSTRIDIUM BUTYRICUM SPORES STRAIN M-55
     Indication: COLITIS ULCERATIVE
     Dosage: 3 DOSAGE FORM, QD?DRUG START PERIOD 956  (DAYS)
     Route: 048
     Dates: start: 20180920
  4. REMICADE [Suspect]
     Active Substance: INFLIXIMAB
     Indication: COLITIS ULCERATIVE
     Dosage: 300 MILLIGRAM, QD?DRUG START PERIOD 284  (DAYS), DRUG LAST PERIOD 26 (DAYS)
     Route: 042
     Dates: start: 20200723
  5. MESALAZINE [Concomitant]
     Active Substance: MESALAMINE
     Indication: COLITIS ULCERATIVE
     Dosage: 4800 MILLIGRAM, QD?DRUG START PERIOD 956  (DAYS
     Route: 048
     Dates: start: 20180920
  6. REMICADE [Suspect]
     Active Substance: INFLIXIMAB
     Dosage: 300 MILLIGRAM, QD?DRUG START PERIOD 284  (DAYS), DRUG LAST PERIOD 26 (DAYS)
     Route: 042
     Dates: start: 20210407, end: 20210407
  7. VEDOLIZUMAB [Concomitant]
     Active Substance: VEDOLIZUMAB
     Dosage: UNK
     Route: 065
     Dates: start: 20210526

REACTIONS (4)
  - Hepatic enzyme increased [Recovering/Resolving]
  - Haemophagocytic lymphohistiocytosis [Recovering/Resolving]
  - Febrile neutropenia [Recovering/Resolving]
  - Blood creatine phosphokinase increased [Recovering/Resolving]

NARRATIVE: CASE EVENT DATE: 20210502
